FAERS Safety Report 4321830-0 (Version None)
Quarter: 2004Q1

REPORT INFORMATION
  Report Type: 
  Country: None (occurrence: None)
  Receive Date: 20040318
  Receipt Date: 20040318
  Transmission Date: 20041129
  Serious: Yes (Life-Threatening)
  Sender: FDA-Public Use
  Company Number: None

PATIENT
  Age: 36 Year
  Sex: Female

DRUGS (4)
  1. DIPHENHYDRAMINE HCL [Suspect]
     Indication: EYE SWELLING
     Dosage: 25MG 1 ORAL
     Route: 048
     Dates: start: 20040213, end: 20040213
  2. DIPHENHYDRAMINE HCL [Suspect]
     Indication: HYPERSENSITIVITY
     Dosage: 25MG 1 ORAL
     Route: 048
     Dates: start: 20040213, end: 20040213
  3. WELLBUTRIN SR [Concomitant]
  4. PROZAC -FLUOXETINE0 [Concomitant]

REACTIONS (3)
  - DEPRESSION [None]
  - MOOD ALTERED [None]
  - SUICIDAL IDEATION [None]
